FAERS Safety Report 5451252-0 (Version None)
Quarter: 2007Q3

REPORT INFORMATION
  Report Type: 
  Country: None (occurrence: None)
  Receive Date: 20070911
  Receipt Date: 20070911
  Transmission Date: 20080115
  Serious: Yes (Life-Threatening)
  Sender: FDA-Public Use
  Company Number: None

PATIENT
  Age: 54 Year
  Sex: Female
  Weight: 95.2554 kg

DRUGS (1)
  1. SCHIFF DAILY WELLNESS SINGLE SCHIFF NUTRITION GROUP [Suspect]
     Indication: MEDICAL DIET
     Dosage: ONE A DAY DAILY
     Dates: start: 19980101, end: 20070506

REACTIONS (5)
  - DRUG TOXICITY [None]
  - NEUROPATHY [None]
  - PAIN [None]
  - VITAMIN B12 INCREASED [None]
  - VITAMIN B6 DECREASED [None]
